FAERS Safety Report 12364027 (Version 1)
Quarter: 2016Q2

REPORT INFORMATION
  Report Type: Spontaneous
  Country: US (occurrence: US)
  Receive Date: 20160512
  Receipt Date: 20160512
  Transmission Date: 20160815
  Serious: No
  Sender: FDA-Public Use
  Company Number: GXBR2015US002604

PATIENT
  Age: 54 Year
  Sex: Female

DRUGS (3)
  1. PREVACID [Suspect]
     Active Substance: LANSOPRAZOLE
     Indication: ABDOMINAL DISCOMFORT
     Dosage: 30 MG, BID
  2. PREDNISONE TABLETS USP [Suspect]
     Active Substance: PREDNISONE
     Indication: ARTHRITIS
     Dosage: UNK DF, UNK
     Route: 065
  3. PREVACID [Suspect]
     Active Substance: LANSOPRAZOLE
     Dosage: 30 MG, QD

REACTIONS (3)
  - Abdominal discomfort [Recovered/Resolved]
  - Haematemesis [Recovered/Resolved]
  - Eructation [Recovered/Resolved]
